FAERS Safety Report 24540346 (Version 1)
Quarter: 2024Q4

REPORT INFORMATION
  Report Type: Spontaneous
  Country: US (occurrence: US)
  Receive Date: 20241023
  Receipt Date: 20241023
  Transmission Date: 20250115
  Serious: Yes (Other)
  Sender: BRISTOL-MYERS SQUIBB COMPANY
  Company Number: US-BRISTOL-MYERS SQUIBB COMPANY-2024-163218

PATIENT
  Age: 71 Year
  Sex: Female
  Weight: 68.04 kg

DRUGS (3)
  1. REVLIMID [Suspect]
     Active Substance: LENALIDOMIDE
     Indication: Plasma cell myeloma
     Dosage: DOSE : 5 MG;     FREQ : EVERY DAY
     Route: 048
     Dates: start: 202306
  2. PENICILLIN [Concomitant]
     Active Substance: PENICILLIN
     Indication: Product used for unknown indication
  3. ACYCLOVIR [Concomitant]
     Active Substance: ACYCLOVIR
     Indication: Product used for unknown indication

REACTIONS (3)
  - Fatigue [Unknown]
  - Squamous cell carcinoma of skin [Unknown]
  - Off label use [Unknown]

NARRATIVE: CASE EVENT DATE: 20241001
